FAERS Safety Report 7471616-3 (Version None)
Quarter: 2011Q2

REPORT INFORMATION
  Report Type: 
  Country: None (occurrence: None)
  Receive Date: 20110502
  Receipt Date: 20110421
  Transmission Date: 20111010
  Serious: Yes (Hospitalization)
  Sender: FDA-Public Use
  Company Number: 2011-00455

PATIENT
  Age: 63 Year
  Sex: Male
  Weight: 66 kg

DRUGS (9)
  1. SIMVASTATIN [Suspect]
     Indication: PRODUCT USED FOR UNKNOWN INDICATION
     Dosage: 80 MG , ORAL
     Route: 048
  2. CLOPIDOGREL [Concomitant]
  3. HYDRALAZINE HCL [Concomitant]
  4. OMEPRAZOLE [Concomitant]
  5. RANOLAZINE [Suspect]
     Indication: PRODUCT USED FOR UNKNOWN INDICATION
     Dosage: 500 MG , ORAL
     Route: 048
  6. NITROGLYCERIN [Concomitant]
  7. FUROSEMIDE [Concomitant]
  8. METOPROLOL TARTRATE [Concomitant]
  9. ISOSORBIDE MONONITRATE [Concomitant]

REACTIONS (10)
  - PNEUMONIA [None]
  - RHABDOMYOLYSIS [None]
  - THROMBOPHLEBITIS SUPERFICIAL [None]
  - BLOOD THYROID STIMULATING HORMONE INCREASED [None]
  - CARDIAC FAILURE CONGESTIVE [None]
  - RESPIRATORY FAILURE [None]
  - ATRIAL FIBRILLATION [None]
  - CONDITION AGGRAVATED [None]
  - DRUG INTERACTION [None]
  - PULMONARY OEDEMA [None]
